FAERS Safety Report 7414676-8 (Version None)
Quarter: 2011Q2

REPORT INFORMATION
  Report Type: 
  Country: None (occurrence: None)
  Receive Date: 20110406
  Receipt Date: 20110323
  Transmission Date: 20111010
  Serious: Yes (Other)
  Sender: FDA-Public Use
  Company Number: 2011SP013297

PATIENT
  Age: 42 Year
  Sex: Male

DRUGS (6)
  1. ZOFRAN [Concomitant]
  2. PROMETHAZINE [Concomitant]
  3. METHADON HCL TAB [Concomitant]
  4. MOTRIN [Concomitant]
  5. PEG-INTRON [Suspect]
     Indication: HEPATITIS C
     Dosage: 150 MCG, SC
     Route: 058
     Dates: start: 20090108
  6. RIBAVIRIN [Suspect]
     Indication: PRODUCT USED FOR UNKNOWN INDICATION
     Dosage: PO
     Route: 048
     Dates: start: 20090108

REACTIONS (4)
  - SENSORY LOSS [None]
  - HYPOAESTHESIA [None]
  - ABASIA [None]
  - MUSCULAR WEAKNESS [None]
